FAERS Safety Report 7316118-X (Version None)
Quarter: 2011Q1

REPORT INFORMATION
  Report Type: 
  Country: None (occurrence: None)
  Receive Date: 20110225
  Receipt Date: 20110217
  Transmission Date: 20110831
  Serious: Yes (Other)
  Sender: FDA-Public Use
  Company Number: CHPA2011US02933

PATIENT
  Age: 59 Year
  Sex: Male

DRUGS (1)
  1. BENEFIBER FIBER SUPP VIT B + FOLIC ACID [Suspect]
     Indication: FAECES HARD
     Dosage: 1 TSP, QD
     Route: 048
     Dates: start: 20110201

REACTIONS (5)
  - EXPIRED DRUG ADMINISTERED [None]
  - DYSURIA [None]
  - OFF LABEL USE [None]
  - ANURIA [None]
  - URINE OUTPUT DECREASED [None]
